FAERS Safety Report 20765651 (Version 4)
Quarter: 2022Q2

REPORT INFORMATION
  Report Type: Report from Study
  Country: CA (occurrence: CA)
  Receive Date: 20220428
  Receipt Date: 20220517
  Transmission Date: 20220721
  Serious: Yes (Other)
  Sender: FDA-Public Use
  Company Number: CA-SA-SAC20220421000787

PATIENT
  Age: 14 Year
  Sex: Female

DRUGS (38)
  1. DUPILUMAB [Suspect]
     Active Substance: DUPILUMAB
     Indication: Asthma
     Dosage: 600 MG, 1X
     Route: 058
     Dates: start: 20220320, end: 20220320
  2. DUPILUMAB [Suspect]
     Active Substance: DUPILUMAB
     Dosage: 300 MG, QOW
     Route: 058
  3. ADVAIR HFA [Concomitant]
     Active Substance: FLUTICASONE PROPIONATE\SALMETEROL XINAFOATE
  4. ADVAIR HFA [Concomitant]
     Active Substance: FLUTICASONE PROPIONATE\SALMETEROL XINAFOATE
  5. ALBUTEROL [Concomitant]
     Active Substance: ALBUTEROL
  6. ALBUTEROL [Concomitant]
     Active Substance: ALBUTEROL
  7. ALBUMIN HUMAN [Concomitant]
     Active Substance: ALBUMIN HUMAN
  8. ALBUMIN HUMAN [Concomitant]
     Active Substance: ALBUMIN HUMAN
  9. EFFEXOR [Concomitant]
     Active Substance: VENLAFAXINE HYDROCHLORIDE
  10. EFFEXOR [Concomitant]
     Active Substance: VENLAFAXINE HYDROCHLORIDE
  11. CYPROHEPTADINE [Concomitant]
     Active Substance: CYPROHEPTADINE
  12. CYPROHEPTADINE [Concomitant]
     Active Substance: CYPROHEPTADINE
  13. FLORINEF ACETATE [Concomitant]
     Active Substance: FLUDROCORTISONE ACETATE
  14. FLORINEF ACETATE [Concomitant]
     Active Substance: FLUDROCORTISONE ACETATE
  15. RABEPRAZOLE [Concomitant]
     Active Substance: RABEPRAZOLE
  16. RABEPRAZOLE [Concomitant]
     Active Substance: RABEPRAZOLE
  17. DYMISTA [Concomitant]
     Active Substance: AZELASTINE HYDROCHLORIDE\FLUTICASONE PROPIONATE
  18. DYMISTA [Concomitant]
     Active Substance: AZELASTINE HYDROCHLORIDE\FLUTICASONE PROPIONATE
  19. INTUNIV [Concomitant]
     Active Substance: GUANFACINE HYDROCHLORIDE
  20. INTUNIV [Concomitant]
     Active Substance: GUANFACINE HYDROCHLORIDE
  21. RIZATRIPTAN [Concomitant]
     Active Substance: RIZATRIPTAN
     Indication: Migraine
  22. RIZATRIPTAN [Concomitant]
     Active Substance: RIZATRIPTAN
  23. PROPRANOLOL [Concomitant]
     Active Substance: PROPRANOLOL HYDROCHLORIDE
  24. PROPRANOLOL [Concomitant]
     Active Substance: PROPRANOLOL HYDROCHLORIDE
  25. ZOFRAN [Concomitant]
     Active Substance: ONDANSETRON HYDROCHLORIDE
  26. ZOFRAN [Concomitant]
     Active Substance: ONDANSETRON HYDROCHLORIDE
  27. AIMOVIG [Concomitant]
     Active Substance: ERENUMAB-AOOE
  28. AIMOVIG [Concomitant]
     Active Substance: ERENUMAB-AOOE
  29. FLUVOXAMINE [Concomitant]
     Active Substance: FLUVOXAMINE
  30. FLUVOXAMINE [Concomitant]
     Active Substance: FLUVOXAMINE
  31. RUPATADINE FUMARATE [Concomitant]
     Active Substance: RUPATADINE FUMARATE
     Dosage: 10 MG, QD
  32. RUPATADINE FUMARATE [Concomitant]
     Active Substance: RUPATADINE FUMARATE
     Dosage: 10 MG, BID
  33. SODIUM CHLORIDE [Concomitant]
     Active Substance: SODIUM CHLORIDE
  34. SODIUM CHLORIDE [Concomitant]
     Active Substance: SODIUM CHLORIDE
  35. METOCLOPRAMIDE HYDROCHLORIDE [Concomitant]
     Active Substance: METOCLOPRAMIDE HYDROCHLORIDE
  36. METOCLOPRAMIDE HYDROCHLORIDE [Concomitant]
     Active Substance: METOCLOPRAMIDE HYDROCHLORIDE
  37. MOMETASONE FUROATE [Concomitant]
     Active Substance: MOMETASONE FUROATE
     Dosage: UNK UNK, BID
  38. BILASTINE [Concomitant]
     Active Substance: BILASTINE

REACTIONS (15)
  - Mast cell activation syndrome [Recovering/Resolving]
  - Rash pruritic [Not Recovered/Not Resolved]
  - Discomfort [Not Recovered/Not Resolved]
  - Rash vesicular [Not Recovered/Not Resolved]
  - Blister [Unknown]
  - Rash macular [Not Recovered/Not Resolved]
  - Urticaria [Not Recovered/Not Resolved]
  - Pruritus [Unknown]
  - Urticaria [Recovering/Resolving]
  - Eczema [Recovering/Resolving]
  - Injection site pain [Not Recovered/Not Resolved]
  - Rash [Unknown]
  - Rash [Recovering/Resolving]
  - Hypersensitivity [Recovering/Resolving]
  - Product use issue [Unknown]

NARRATIVE: CASE EVENT DATE: 20220301
